FAERS Safety Report 5237882-X (Version None)
Quarter: 2007Q1

REPORT INFORMATION
  Report Type: 
  Country: None (occurrence: None)
  Receive Date: 20070209
  Receipt Date: 20070124
  Transmission Date: 20070707
  Serious: Yes (Hospitalization)
  Sender: FDA-Public Use
  Company Number: DSA_61392_2007

PATIENT
  Age: 17 Month
  Sex: Female

DRUGS (1)
  1. DIASTAT [Suspect]
     Indication: CONVULSION
     Dosage: VAR PRN RC
     Dates: start: 20060101

REACTIONS (3)
  - DYSPNOEA [None]
  - RESPIRATORY DISORDER [None]
  - WHEEZING [None]
